FAERS Safety Report 8119817-5 (Version None)
Quarter: 2012Q1

REPORT INFORMATION
  Report Type: 
  Country: None (occurrence: None)
  Receive Date: 20120206
  Receipt Date: 20120206
  Transmission Date: 20120608
  Serious: Yes (Hospitalization)
  Sender: FDA-Public Use
  Company Number: None

PATIENT
  Age: 55 Year
  Sex: Female
  Weight: 69.4003 kg

DRUGS (2)
  1. CYMBALTA [Suspect]
     Indication: DEPRESSION
     Dosage: 1 DAILY
     Dates: start: 20111215, end: 20111226
  2. CYMBALTA [Suspect]
     Indication: DEPRESSION
     Dosage: 1 DAILY
     Dates: start: 20111227, end: 20120109

REACTIONS (1)
  - PANIC ATTACK [None]
